FAERS Safety Report 4880521-8 (Version None)
Quarter: 2006Q1

REPORT INFORMATION
  Report Type: 
  Country: None (occurrence: None)
  Receive Date: 20060113
  Receipt Date: 20050406
  Transmission Date: 20060701
  Serious: Yes (Hospitalization)
  Sender: FDA-Public Use
  Company Number: US-MERCK-0504USA01024

PATIENT
  Age: 51 Year
  Sex: Male
  Weight: 107 kg

DRUGS (12)
  1. VIOXX [Suspect]
     Indication: ARTHRITIS
     Route: 048
     Dates: start: 20000801, end: 20041001
  2. TOPROL-XL [Concomitant]
     Route: 065
  3. ASPIRIN [Concomitant]
     Route: 065
  4. [THERAPY UNSPECIFIED] [Concomitant]
     Route: 065
  5. COLACE [Concomitant]
     Route: 065
  6. DOXAZOSIN MESYLATE [Concomitant]
     Route: 065
  7. FLOMAX (MORNIFLUMATE) [Concomitant]
     Route: 065
  8. ACETAMINOPHEN AND HYDROCODONE BITARTRATE [Concomitant]
     Route: 065
  9. NEXIUM [Concomitant]
     Route: 065
  10. EXTRA STRENGTH TYLENOL [Concomitant]
     Route: 065
  11. SERZONE [Concomitant]
     Route: 065
  12. VIAGRA [Concomitant]
     Route: 065

REACTIONS (16)
  - ACUTE MYOCARDIAL INFARCTION [None]
  - CALCULUS BLADDER [None]
  - CARDIAC FAILURE CONGESTIVE [None]
  - COLONIC POLYP [None]
  - DYSLIPIDAEMIA [None]
  - FALL [None]
  - FATIGUE [None]
  - FEMUR FRACTURE [None]
  - HYPERTENSION [None]
  - INJURY [None]
  - MYALGIA [None]
  - NEPHROLITHIASIS [None]
  - NODAL RHYTHM [None]
  - SINUS BRADYCARDIA [None]
  - SYNCOPE VASOVAGAL [None]
  - VENTRICULAR EXTRASYSTOLES [None]
